FAERS Safety Report 15700125 (Version 4)
Quarter: 2019Q1

REPORT INFORMATION
  Report Type: Spontaneous
  Country: FR (occurrence: FR)
  Receive Date: 20181207
  Receipt Date: 20190118
  Transmission Date: 20190417
  Serious: Yes (Other)
  Sender: FDA-Public Use
  Company Number: FR-009507513-1812FRA002788

PATIENT
  Age: 78 Year
  Sex: Male

DRUGS (4)
  1. NOVO-NORM [Concomitant]
     Active Substance: REPAGLINIDE
     Dosage: 2 MILLIGRAM
     Dates: start: 20181129
  2. NOVO-NORM [Concomitant]
     Active Substance: REPAGLINIDE
     Dosage: UNK
     Dates: end: 20181126
  3. XELEVIA [Suspect]
     Active Substance: SITAGLIPTIN PHOSPHATE
     Indication: TYPE 2 DIABETES MELLITUS
     Dosage: UNK
     Dates: start: 20181127, end: 20181128
  4. METFORMIN [Suspect]
     Active Substance: METFORMIN HYDROCHLORIDE
     Indication: TYPE 2 DIABETES MELLITUS
     Dosage: UNK
     Dates: start: 20181127, end: 20181128

REACTIONS (5)
  - Genital pain [Recovered/Resolved]
  - Monoplegia [Recovered/Resolved]
  - Renal pain [Recovered/Resolved]
  - Headache [Recovered/Resolved]
  - Pain in extremity [Recovered/Resolved]

NARRATIVE: CASE EVENT DATE: 20181128
